FAERS Safety Report 6491699-7 (Version None)
Quarter: 2009Q4

REPORT INFORMATION
  Report Type: 
  Country: None (occurrence: None)
  Receive Date: 20091207
  Receipt Date: 20091126
  Transmission Date: 20100525
  Serious: Yes (Other)
  Sender: FDA-Public Use
  Company Number: 2009EU004538

PATIENT
  Age: 20 Year
  Sex: Female

DRUGS (2)
  1. TACROLIMUS [Suspect]
     Indication: RENAL TRANSPLANT
     Dosage: 2.5 MG, BID
  2. AZATHIOPRINE [Concomitant]

REACTIONS (9)
  - ANTEPARTUM HAEMORRHAGE [None]
  - BLOOD CREATININE INCREASED [None]
  - CAESAREAN SECTION [None]
  - DRUG EXPOSURE DURING PREGNANCY [None]
  - DRUG LEVEL DECREASED [None]
  - HAEMOGLOBIN DECREASED [None]
  - HYDRONEPHROSIS [None]
  - KIDNEY TRANSPLANT REJECTION [None]
  - PREGNANCY [None]
